FAERS Safety Report 9979055 (Version 1)
Quarter: 2014Q1

REPORT INFORMATION
  Report Type: Report from Study
  Country: US (occurrence: US)
  Receive Date: 20140306
  Receipt Date: 20140306
  Transmission Date: 20141002
  Serious: No
  Sender: FDA-Public Use
  Company Number: US-ABBVIE-13P-163-1169192-00

PATIENT
  Age: 30 Year
  Sex: Female

DRUGS (2)
  1. HUMIRA [Suspect]
     Indication: PSORIATIC ARTHROPATHY
     Route: 058
     Dates: start: 201107
  2. HUMIRA [Suspect]
     Route: 058
     Dates: end: 20111028

REACTIONS (3)
  - Ear infection [Recovering/Resolving]
  - Pharyngitis [Recovering/Resolving]
  - Viral infection [Recovering/Resolving]
